FAERS Safety Report 8766305 (Version 1)
Quarter: 2012Q4

REPORT INFORMATION
  Report Type: 
  Country: JP (occurrence: JP)
  Receive Date: 20120904
  Receipt Date: 20120904
  Transmission Date: 20130627
  Serious: Yes (Congenital Anomaly)
  Sender: FDA-Public Use
  Company Number: PHHY2012JP075822

PATIENT

DRUGS (1)
  1. METHIMAZOLE [Suspect]
     Route: 064

REACTIONS (3)
  - Exomphalos [Unknown]
  - Foetal exposure during pregnancy [Unknown]
  - Foetal exposure during pregnancy [None]
